FAERS Safety Report 4908160-0 (Version None)
Quarter: 2006Q1

REPORT INFORMATION
  Report Type: 
  Country: None (occurrence: None)
  Receive Date: 20060210
  Receipt Date: 20051003
  Transmission Date: 20060701
  Serious: Yes (Hospitalization)
  Sender: FDA-Public Use
  Company Number: US-MERCK-0510USA02720

PATIENT
  Age: 50 Year
  Sex: Female
  Weight: 90 kg

DRUGS (14)
  1. VIOXX [Suspect]
     Indication: ARTHRITIS
     Route: 048
     Dates: start: 20001201, end: 20041001
  2. ASPIRIN [Concomitant]
     Indication: ANALGESIC EFFECT
     Route: 065
  3. NIASPAN [Concomitant]
     Indication: HYPERLIPIDAEMIA
     Route: 065
  4. LOPID [Concomitant]
     Indication: HYPERLIPIDAEMIA
     Route: 065
  5. AMARYL [Concomitant]
     Indication: DIABETES MELLITUS
     Route: 065
  6. METFORMIN [Concomitant]
     Indication: DIABETES MELLITUS
     Route: 065
  7. [THERAPY UNSPECIFIED] [Concomitant]
     Indication: DIABETES MELLITUS
     Route: 065
  8. VICODIN [Concomitant]
     Indication: PAIN
     Route: 065
  9. FLEXERIL [Concomitant]
     Indication: PAIN
     Route: 048
  10. PEPCID [Concomitant]
     Indication: GASTROOESOPHAGEAL REFLUX DISEASE
     Route: 065
  11. EFFEXOR XR [Concomitant]
     Indication: DEPRESSION
     Route: 065
  12. ATENOLOL [Concomitant]
     Route: 065
  13. NORVASC [Concomitant]
     Route: 065
  14. PREMARIN [Concomitant]
     Route: 065

REACTIONS (14)
  - BREAST PAIN [None]
  - BURSITIS [None]
  - CEREBROVASCULAR ACCIDENT [None]
  - CONTUSION [None]
  - FALL [None]
  - HERPES ZOSTER [None]
  - INTERVERTEBRAL DISC PROTRUSION [None]
  - LIMB INJURY [None]
  - MYCOSIS FUNGOIDES [None]
  - RADICULOPATHY [None]
  - ROAD TRAFFIC ACCIDENT [None]
  - ROTATOR CUFF SYNDROME [None]
  - SHOULDER PAIN [None]
  - SKIN CANCER [None]
